FAERS Safety Report 5932366-5 (Version None)
Quarter: 2008Q4

REPORT INFORMATION
  Report Type: 
  Country: None (occurrence: None)
  Receive Date: 20081028
  Receipt Date: 20081017
  Transmission Date: 20090506
  Serious: Yes (Death, Other)
  Sender: FDA-Public Use
  Company Number: JP-BAYER-200827239GPV

PATIENT
  Age: 5 Year
  Sex: Male

DRUGS (10)
  1. FLUDARABINE [Suspect]
     Indication: CORD BLOOD TRANSPLANT THERAPY
     Route: 042
     Dates: start: 20050801, end: 20050801
  2. BUSULFAN [Suspect]
     Indication: CORD BLOOD TRANSPLANT THERAPY
     Route: 048
     Dates: start: 20050801, end: 20050801
  3. CYCLOPHOSPHAMIDE [Suspect]
     Indication: CORD BLOOD TRANSPLANT THERAPY
     Route: 042
     Dates: start: 20050801, end: 20050801
  4. TACROLIMUS [Suspect]
     Indication: PROPHYLAXIS AGAINST GRAFT VERSUS HOST DISEASE
     Route: 065
  5. METHOTREXATE [Suspect]
     Indication: PROPHYLAXIS AGAINST GRAFT VERSUS HOST DISEASE
     Dates: start: 20050902
  6. METHOTREXATE [Suspect]
     Dates: start: 20050901, end: 20050901
  7. NEUPOGEN [Concomitant]
     Dates: start: 20050902
  8. HEPARIN [Concomitant]
     Indication: CARDIOVASCULAR EVENT PROPHYLAXIS
  9. ANTICONVULSANTS [Concomitant]
     Indication: CONVULSION PROPHYLAXIS
     Dates: start: 20050801
  10. MESNA [Concomitant]
     Indication: PROPHYLAXIS
     Dates: start: 20050801

REACTIONS (3)
  - ACUTE GRAFT VERSUS HOST DISEASE [None]
  - EPSTEIN-BARR VIRUS ASSOCIATED LYMPHOPROLIFERATIVE DISORDER [None]
  - STAPHYLOCOCCAL SEPSIS [None]
